FAERS Safety Report 15136748 (Version 1)
Quarter: 2018Q3

REPORT INFORMATION
  Report Type: Report from Study
  Country: US (occurrence: US)
  Receive Date: 20180712
  Receipt Date: 20180712
  Transmission Date: 20181010
  Serious: Yes (Death, Hospitalization)
  Sender: FDA-Public Use
  Company Number: US-TEVA-2018-US-921829

PATIENT
  Age: 71 Year
  Sex: Female

DRUGS (1)
  1. CARBOPLATIN. [Suspect]
     Active Substance: CARBOPLATIN
     Indication: LARYNGEAL SQUAMOUS CELL CARCINOMA
     Dosage: 3 CYCLES OF CARBOPLATIN AUC 5 EVERY THREE WEEKS
     Route: 065

REACTIONS (4)
  - Hypoxic-ischaemic encephalopathy [Fatal]
  - Failure to thrive [Fatal]
  - Hypoglycaemia [Fatal]
  - Dehydration [Fatal]
